FAERS Safety Report 10409223 (Version 1)
Quarter: 2014Q3

REPORT INFORMATION
  Report Type: Spontaneous
  Country: IT (occurrence: None)
  Receive Date: 20140822
  Receipt Date: 20140822
  Transmission Date: 20150326
  Serious: Yes (Other)
  Sender: FDA-Public Use
  Company Number: AUR-APL-2014-08708

PATIENT
  Age: 85 Year
  Sex: Female

DRUGS (4)
  1. LORAZEPAM (LORAZEPAM) UKNOWN [Suspect]
     Active Substance: LORAZEPAM
     Indication: PRODUCT USED FOR UNKNOWN INDICATION
     Dosage: 1 DF, TOTAL, ORAL
     Route: 048
     Dates: start: 20140808, end: 20140808
  2. STILNOX (ZOLPIDEM TARTRATE) FILM-COATED TABLET [Suspect]
     Active Substance: ZOLPIDEM TARTRATE
     Indication: PRODUCT USED FOR UNKNOWN INDICATION
     Dosage: 2 DF, TOTAL, ORAL
     Route: 048
     Dates: start: 20140808, end: 20140808
  3. LENDORMIN (BROTIZOLAM) TABLET [Suspect]
     Active Substance: BROTIZOLAM
     Indication: PRODUCT USED FOR UNKNOWN INDICATION
     Dosage: 1 DF, TOTAL ORAL
     Route: 048
     Dates: start: 20140808, end: 20140808
  4. MIRTAZAPINE (MIRTAZAPINE) [Suspect]
     Active Substance: MIRTAZAPINE
     Indication: PRODUCT USED FOR UNKNOWN INDICATION
     Dosage: 1 DF, TOTAL, ORAL
     Route: 048
     Dates: start: 20140808, end: 20140808

REACTIONS (3)
  - Sopor [None]
  - Intentional self-injury [None]
  - Drug abuse [None]

NARRATIVE: CASE EVENT DATE: 20140809
